FAERS Safety Report 7355923-0 (Version None)
Quarter: 2011Q1

REPORT INFORMATION
  Report Type: 
  Country: None (occurrence: None)
  Receive Date: 20110316
  Receipt Date: 20110311
  Transmission Date: 20110831
  Serious: Yes (Hospitalization, Other)
  Sender: FDA-Public Use
  Company Number: BR-ABBOTT-11P-020-0711150-00

PATIENT
  Sex: Female
  Weight: 60 kg

DRUGS (2)
  1. HUMIRA [Suspect]
     Indication: RHEUMATOID ARTHRITIS
     Route: 058
     Dates: start: 20100421
  2. LEFLUNOMIDE [Concomitant]
     Indication: RHEUMATOID ARTHRITIS
     Route: 048

REACTIONS (7)
  - MALAISE [None]
  - HERPES VIRUS INFECTION [None]
  - WEIGHT DECREASED [None]
  - NEURALGIA [None]
  - PYREXIA [None]
  - BLOOD CHOLESTEROL INCREASED [None]
  - PAIN [None]
